FAERS Safety Report 8419159-4 (Version None)
Quarter: 2012Q2

REPORT INFORMATION
  Report Type: 
  Country: None (occurrence: None)
  Receive Date: 20120607
  Receipt Date: 20120531
  Transmission Date: 20120825
  Serious: Yes (Other)
  Sender: FDA-Public Use
  Company Number: US-PFIZER INC-2012131746

PATIENT
  Sex: Female

DRUGS (4)
  1. LIPITOR [Suspect]
     Indication: BLOOD CHOLESTEROL INCREASED
     Dosage: 80 MG, DAILY
     Route: 048
  2. LIPITOR [Suspect]
     Dosage: 40 MG, 1X/DAY
  3. NIASPAN [Suspect]
     Indication: LOW DENSITY LIPOPROTEIN
     Dosage: 500 MG, UNK
  4. COENZYME Q10 [Concomitant]
     Dosage: UNK

REACTIONS (5)
  - MYALGIA [None]
  - FLUSHING [None]
  - LOW DENSITY LIPOPROTEIN INCREASED [None]
  - PAIN [None]
  - PARAESTHESIA [None]
